FAERS Safety Report 24308091 (Version 4)
Quarter: 2025Q3

REPORT INFORMATION
  Report Type: Spontaneous
  Country: JP (occurrence: JP)
  Receive Date: 20240911
  Receipt Date: 20250904
  Transmission Date: 20251021
  Serious: Yes (Death, Life-Threatening, Hospitalization, Other)
  Sender: SANOFI AVENTIS
  Company Number: JP-MLMSERVICE-20240902-PI176890-00239-1

PATIENT
  Age: 50 Year
  Sex: Male
  Weight: 107.4 kg

DRUGS (7)
  1. PREGABALIN [Suspect]
     Active Substance: PREGABALIN
  2. ZOLPIDEM TARTRATE [Suspect]
     Active Substance: ZOLPIDEM TARTRATE
  3. FLUNITRAZEPAM [Suspect]
     Active Substance: FLUNITRAZEPAM
  4. FLUNITRAZEPAM [Suspect]
     Active Substance: FLUNITRAZEPAM
  5. SUVOREXANT [Concomitant]
     Active Substance: SUVOREXANT
  6. LOXOPROFEN SODIUM DIHYDRATE [Concomitant]
     Active Substance: LOXOPROFEN SODIUM DIHYDRATE
  7. AMLODIPINE [Concomitant]
     Active Substance: AMLODIPINE BESYLATE

REACTIONS (4)
  - Pulmonary oedema [Fatal]
  - Urinary incontinence [Fatal]
  - Toxicity to various agents [Fatal]
  - Overdose [Fatal]
